FAERS Safety Report 5342505-5 (Version None)
Quarter: 2007Q2

REPORT INFORMATION
  Report Type: 
  Country: None (occurrence: None)
  Receive Date: 20070601
  Receipt Date: 20070522
  Transmission Date: 20071010
  Serious: Yes (Other)
  Sender: FDA-Public Use
  Company Number: US-PFIZER INC-2007026309

PATIENT
  Sex: Female
  Weight: 71.7 kg

DRUGS (4)
  1. CHANTIX [Suspect]
     Indication: SMOKING CESSATION THERAPY
     Route: 048
     Dates: start: 20070302, end: 20070328
  2. LEXAPRO [Concomitant]
     Dosage: DAILY DOSE:20MG
     Route: 048
  3. STERAPRED [Concomitant]
     Indication: SINUSITIS
  4. BECONAMINE SR [Concomitant]
     Indication: SINUSITIS
     Route: 048

REACTIONS (3)
  - DEPRESSION [None]
  - FATIGUE [None]
  - RASH MACULAR [None]
